FAERS Safety Report 23292430 (Version 12)
Quarter: 2025Q3

REPORT INFORMATION
  Report Type: Spontaneous
  Country: US (occurrence: US)
  Receive Date: 20231213
  Receipt Date: 20250721
  Transmission Date: 20251020
  Serious: Yes (Disabling, Other)
  Sender: AMGEN
  Company Number: US-HORIZON THERAPEUTICS-HZN-2023-010439

PATIENT
  Age: 51 Year
  Sex: Female

DRUGS (95)
  1. TEPEZZA [Suspect]
     Active Substance: TEPROTUMUMAB-TRBW
     Indication: Endocrine ophthalmopathy
     Route: 040
     Dates: start: 20200626
  2. TEPEZZA [Suspect]
     Active Substance: TEPROTUMUMAB-TRBW
     Route: 040
     Dates: start: 20200717
  3. TEPEZZA [Suspect]
     Active Substance: TEPROTUMUMAB-TRBW
     Route: 040
     Dates: start: 20200807
  4. TEPEZZA [Suspect]
     Active Substance: TEPROTUMUMAB-TRBW
     Route: 040
     Dates: start: 20200828
  5. TEPEZZA [Suspect]
     Active Substance: TEPROTUMUMAB-TRBW
     Route: 040
     Dates: start: 20200918
  6. TEPEZZA [Suspect]
     Active Substance: TEPROTUMUMAB-TRBW
     Route: 040
     Dates: start: 20201009
  7. TEPEZZA [Suspect]
     Active Substance: TEPROTUMUMAB-TRBW
     Route: 040
     Dates: start: 20201030
  8. TEPEZZA [Suspect]
     Active Substance: TEPROTUMUMAB-TRBW
     Route: 040
     Dates: start: 20201119
  9. TEPEZZA [Suspect]
     Active Substance: TEPROTUMUMAB-TRBW
     Route: 042
     Dates: start: 202101
  10. PREDNISONE [Suspect]
     Active Substance: PREDNISONE
     Indication: Product used for unknown indication
     Dosage: 5 MILLIGRAM, QD, (6 ORAL TODAY AND THEN 5,4,3,2, 1)
     Route: 048
     Dates: start: 20171024
  11. ALPRAZOLAM [Concomitant]
     Active Substance: ALPRAZOLAM
     Route: 048
  12. ELAVIL [Concomitant]
     Active Substance: AMITRIPTYLINE HYDROCHLORIDE
     Dosage: 300 MILLIGRAM, QD (3 TABLETS BY MOUTH AT BED TIME)
     Route: 048
  13. AMLODIPINE [Concomitant]
     Active Substance: AMLODIPINE BESYLATE
  14. AMOXICILLIN [Concomitant]
     Active Substance: AMOXICILLIN
  15. ATENOLOL [Concomitant]
     Active Substance: ATENOLOL
  16. BELSOMRA [Concomitant]
     Active Substance: SUVOREXANT
     Route: 048
  17. WELLBUTRIN XL [Concomitant]
     Active Substance: BUPROPION HYDROCHLORIDE
     Route: 065
  18. CARDIZEM LA [Concomitant]
     Active Substance: DILTIAZEM HYDROCHLORIDE
     Dosage: 180 MILLIGRAM, QD
     Route: 048
  19. CHLORHEXIDINE GLUCONATE [Concomitant]
     Active Substance: CHLORHEXIDINE GLUCONATE
  20. CHLORZOXAZONE [Concomitant]
     Active Substance: CHLORZOXAZONE
  21. CITALOPRAM [Concomitant]
     Active Substance: CITALOPRAM
     Dosage: UNK UNK, QD
     Route: 048
  22. KLONOPIN [Concomitant]
     Active Substance: CLONAZEPAM
     Dosage: 2 MILLIGRAM, BID
     Route: 048
  23. CLOTRIMAZOLE [Concomitant]
     Active Substance: CLOTRIMAZOLE
  24. DOXEPIN [Concomitant]
     Active Substance: DOXEPIN
     Route: 065
  25. DOXEPIN [Concomitant]
     Active Substance: DOXEPIN
     Route: 065
  26. Romycin [Concomitant]
  27. ESZOPICLONE [Concomitant]
     Active Substance: ESZOPICLONE
  28. FERROUS GLUCONATE [Concomitant]
     Active Substance: FERROUS GLUCONATE
     Route: 048
  29. FUROSEMIDE [Concomitant]
     Active Substance: FUROSEMIDE
     Dosage: UNK UNK, QD
     Route: 048
  30. Hemocyte F [Concomitant]
  31. HYDROXYZINE PAMOATE [Concomitant]
     Active Substance: HYDROXYZINE PAMOATE
  32. LAMOTRIGINE [Concomitant]
     Active Substance: LAMOTRIGINE
     Dosage: 500 MILLIGRAM, QD
     Route: 048
  33. LAMOTRIGINE [Concomitant]
     Active Substance: LAMOTRIGINE
     Dosage: 25 MILLIGRAM, QD
     Route: 048
  34. LEVOFLOXACIN [Concomitant]
     Active Substance: LEVOFLOXACIN
  35. SYNTHROID [Concomitant]
     Active Substance: LEVOTHYROXINE SODIUM
     Dosage: 150 MICROGRAM, QD
     Route: 048
  36. SYNTHROID [Concomitant]
     Active Substance: LEVOTHYROXINE SODIUM
     Dosage: 125 MICROGRAM, QD
     Route: 048
  37. SYNTHROID [Concomitant]
     Active Substance: LEVOTHYROXINE SODIUM
     Route: 048
  38. LIDOCAINE [Concomitant]
     Active Substance: LIDOCAINE
  39. LITHIUM CARBONATE [Concomitant]
     Active Substance: LITHIUM CARBONATE
  40. HYDROCODONE [Concomitant]
     Active Substance: HYDROCODONE
     Indication: Pain
     Route: 048
  41. METHOCARBAMOL [Concomitant]
     Active Substance: METHOCARBAMOL
  42. MISOPROSTOL [Concomitant]
     Active Substance: MISOPROSTOL
     Dosage: UNK UNK, QID
     Route: 048
     Dates: start: 20141029
  43. OMEPRAZOLE [Concomitant]
     Active Substance: OMEPRAZOLE
  44. ONDANSETRON [Concomitant]
     Active Substance: ONDANSETRON
  45. ROXICODONE [Concomitant]
     Active Substance: OXYCODONE HYDROCHLORIDE
     Route: 065
  46. PREVIDENT [Concomitant]
     Active Substance: SODIUM FLUORIDE
  47. PHENERGAN [Concomitant]
     Active Substance: PROMETHAZINE HYDROCHLORIDE
     Route: 065
  48. PROMETHEGAN [Concomitant]
     Active Substance: PROMETHAZINE HYDROCHLORIDE
  49. QUETIAPINE [Concomitant]
     Active Substance: QUETIAPINE
  50. SILENOR [Concomitant]
     Active Substance: DOXEPIN HYDROCHLORIDE
  51. SILVER SULFADIAZINE [Concomitant]
     Active Substance: SILVER SULFADIAZINE
  52. ULTRAM [Concomitant]
     Active Substance: TRAMADOL HYDROCHLORIDE
     Dosage: 50 MILLIGRAM, QD
     Route: 048
  53. TRIAMCINOLONE ACETONIDE [Concomitant]
     Active Substance: TRIAMCINOLONE ACETONIDE
  54. VENTOLIN HFA [Concomitant]
     Active Substance: ALBUTEROL SULFATE
  55. VITAMIN D2 [Concomitant]
     Active Substance: ERGOCALCIFEROL
  56. ZOLPIDEM [Concomitant]
     Active Substance: ZOLPIDEM TARTRATE
  57. DIPHENHYDRAMINE [Concomitant]
     Active Substance: DIPHENHYDRAMINE
     Route: 065
  58. SODIUM CHLORIDE [Concomitant]
     Active Substance: SODIUM CHLORIDE
  59. XANAX [Concomitant]
     Active Substance: ALPRAZOLAM
     Route: 048
  60. ZANTAC [Concomitant]
     Active Substance: RANITIDINE HYDROCHLORIDE
  61. ASTEPRO [Concomitant]
     Active Substance: AZELASTINE HYDROCHLORIDE
  62. DYMISTA [Concomitant]
     Active Substance: AZELASTINE HYDROCHLORIDE\FLUTICASONE PROPIONATE
  63. FLONASE [Concomitant]
     Active Substance: FLUTICASONE PROPIONATE
  64. REMERON [Concomitant]
     Active Substance: MIRTAZAPINE
     Dosage: 45 MILLIGRAM, QD
     Route: 048
  65. VRAYLAR [Concomitant]
     Active Substance: CARIPRAZINE
     Dosage: 3 MILLIGRAM, QD
     Route: 048
  66. INFLUENZA VIRUS VACCINE [Concomitant]
     Active Substance: INFLUENZA VIRUS VACCINE
     Route: 065
     Dates: start: 20201020
  67. VIGAMOX [Concomitant]
     Active Substance: MOXIFLOXACIN HYDROCHLORIDE
     Route: 065
  68. LAMICTAL [Concomitant]
     Active Substance: LAMOTRIGINE
     Route: 065
  69. SONATA [Concomitant]
     Active Substance: ZALEPLON
     Route: 048
  70. PLAVIX [Concomitant]
     Active Substance: CLOPIDOGREL BISULFATE
     Dosage: 75 MILLIGRAM, QD
     Route: 048
  71. LUNESTA [Concomitant]
     Active Substance: ESZOPICLONE
     Indication: Sleep disorder
     Dosage: 6 MILLIGRAM, QD
     Route: 048
  72. TOPAMAX [Concomitant]
     Active Substance: TOPIRAMATE
     Dosage: 100 MILLIGRAM, QD
     Route: 048
  73. ADIPEX-P [Concomitant]
     Active Substance: PHENTERMINE HYDROCHLORIDE
     Dosage: 15 MILLIGRAM, QD
     Route: 048
  74. ZYPREXA [Concomitant]
     Active Substance: OLANZAPINE
     Dosage: 20 MILLIGRAM, QD
     Route: 048
  75. CYTOMEL [Concomitant]
     Active Substance: LIOTHYRONINE SODIUM
     Dosage: 5 MICROGRAM, QD
     Route: 048
  76. OZEMPIC [Concomitant]
     Active Substance: SEMAGLUTIDE
     Dosage: 0.25 MILLIGRAM, QWK
     Route: 065
  77. ADDERALL [Concomitant]
     Active Substance: AMPHETAMINE ASPARTATE\AMPHETAMINE SULFATE\DEXTROAMPHETAMINE SACCHARATE\DEXTROAMPHETAMINE SULFATE
     Dosage: 20 MILLIGRAM, QD
     Route: 048
  78. IMODIUM [Concomitant]
     Active Substance: LOPERAMIDE HYDROCHLORIDE
     Route: 065
  79. DESYREL [Concomitant]
     Active Substance: TRAZODONE HYDROCHLORIDE
  80. XIIDRA [Concomitant]
     Active Substance: LIFITEGRAST
     Dosage: 1 DROP, BID
  81. TOBRADEX [Concomitant]
     Active Substance: DEXAMETHASONE\TOBRAMYCIN
  82. DELTASONE [Concomitant]
     Active Substance: PREDNISONE
     Dosage: 10 MILLIGRAM, QD
     Route: 048
  83. LACTATED RINGERS SOLUTION [Concomitant]
     Active Substance: CALCIUM CHLORIDE\POTASSIUM CHLORIDE\SODIUM CHLORIDE\SODIUM LACTATE
     Route: 065
  84. PROPOFOL [Concomitant]
     Active Substance: PROPOFOL
     Route: 065
  85. MIDAZOLAM [Concomitant]
     Active Substance: MIDAZOLAM
     Route: 065
  86. PHENYLEPHRINE [Concomitant]
     Active Substance: PHENYLEPHRINE
     Route: 065
  87. SODIUM CHLORIDE [Concomitant]
     Active Substance: SODIUM CHLORIDE
     Route: 065
  88. DEXAMETHASONE [Concomitant]
     Active Substance: DEXAMETHASONE
     Route: 065
  89. PROMETHAZINE [Concomitant]
     Active Substance: PROMETHAZINE HYDROCHLORIDE
     Route: 065
  90. ERYTHROMYCIN [Concomitant]
     Active Substance: ERYTHROMYCIN
     Route: 065
  91. DEXMEDETOMIDINE [Concomitant]
     Active Substance: DEXMEDETOMIDINE
     Route: 065
  92. FENTANYL [Concomitant]
     Active Substance: FENTANYL
     Route: 065
  93. UPNEEQ [Concomitant]
     Active Substance: OXYMETAZOLINE HYDROCHLORIDE
     Dosage: 1 DROP, BID
     Route: 047
     Dates: start: 20220210, end: 20220511
  94. DUONEB [Concomitant]
     Active Substance: ALBUTEROL SULFATE\IPRATROPIUM BROMIDE
     Dosage: UNK UNK, QID
     Route: 065
     Dates: start: 20160531, end: 20210316
  95. BACITRACIN [Concomitant]
     Active Substance: BACITRACIN
     Dosage: UNK UNK, QID
     Route: 047
     Dates: start: 20161025, end: 20210316

REACTIONS (75)
  - Physical disability [Not Recovered/Not Resolved]
  - Disability [Not Recovered/Not Resolved]
  - Sight disability [Unknown]
  - Deafness permanent [Not Recovered/Not Resolved]
  - Intestinal infarction [Unknown]
  - Rheumatoid arthritis [Unknown]
  - Pain [Not Recovered/Not Resolved]
  - Injury [Not Recovered/Not Resolved]
  - Anxiety [Unknown]
  - Concomitant disease aggravated [Not Recovered/Not Resolved]
  - Discomfort [Unknown]
  - Impaired quality of life [Not Recovered/Not Resolved]
  - Emotional distress [Not Recovered/Not Resolved]
  - Economic problem [Not Recovered/Not Resolved]
  - Product quality issue [Unknown]
  - Muscular weakness [Recovered/Resolved]
  - Night sweats [Unknown]
  - Palpitations [Unknown]
  - Temperature intolerance [Unknown]
  - Poor peripheral circulation [Unknown]
  - Eye irritation [Unknown]
  - Visual impairment [Unknown]
  - Dry eye [Not Recovered/Not Resolved]
  - Eye pain [Unknown]
  - Ocular discomfort [Unknown]
  - Vision blurred [Unknown]
  - Photophobia [Unknown]
  - Insomnia [Unknown]
  - Chills [Unknown]
  - Dysphagia [Unknown]
  - Sleep apnoea syndrome [Unknown]
  - Vomiting [Unknown]
  - Arthralgia [Unknown]
  - Musculoskeletal stiffness [Unknown]
  - Balance disorder [Unknown]
  - Coordination abnormal [Unknown]
  - Dizziness [Unknown]
  - Amnesia [Unknown]
  - Insomnia [Unknown]
  - Restless legs syndrome [Unknown]
  - Depression [Unknown]
  - Seborrhoeic keratosis [Unknown]
  - Perioral dermatitis [Unknown]
  - Lentigo [Unknown]
  - Telangiectasia [Unknown]
  - Melanocytic naevus [Unknown]
  - Diarrhoea [Unknown]
  - Onycholysis [Unknown]
  - Off label use [Unknown]
  - Acute sinusitis [Unknown]
  - Bursitis [Unknown]
  - Oral candidiasis [Unknown]
  - Hyperlipidaemia [Unknown]
  - Spondylolisthesis [Recovering/Resolving]
  - Vulvovaginal dryness [Unknown]
  - Pain in extremity [Unknown]
  - Blood thyroid stimulating hormone decreased [Unknown]
  - Glycosylated haemoglobin decreased [Unknown]
  - Blood thyroid stimulating hormone increased [Unknown]
  - Vitamin D decreased [Unknown]
  - Mean cell volume increased [Unknown]
  - Mean cell haemoglobin increased [Unknown]
  - Blood urea nitrogen/creatinine ratio increased [Unknown]
  - Blood chloride increased [Unknown]
  - Carbon dioxide decreased [Unknown]
  - Transferrin saturation decreased [Unknown]
  - Vitamin K decreased [Unknown]
  - Blood phosphorus decreased [Unknown]
  - Weight decreased [Unknown]
  - Tinnitus [Not Recovered/Not Resolved]
  - Muscle spasms [Unknown]
  - Nausea [Unknown]
  - Headache [Unknown]
  - Fatigue [Unknown]
  - Drug ineffective [Unknown]

NARRATIVE: CASE EVENT DATE: 20180410
